FAERS Safety Report 4749174-3 (Version None)
Quarter: 2005Q3

REPORT INFORMATION
  Report Type: 
  Country: None (occurrence: None)
  Receive Date: 20050817
  Receipt Date: 20050802
  Transmission Date: 20060218
  Serious: Yes (Hospitalization)
  Sender: FDA-Public Use
  Company Number: 2005FR-00210

PATIENT
  Age: 96 Year
  Sex: Female

DRUGS (5)
  1. ASPIRIN [Suspect]
     Dosage: 75MG, OD, ORAL
     Route: 048
     Dates: end: 20050721
  2. ETORICOXIB [Concomitant]
  3. ALENDRONATE [Concomitant]
  4. CANDESARTAN [Concomitant]
  5. FUROSEMIDE [Concomitant]

REACTIONS (4)
  - DUODENAL ULCER [None]
  - GASTRIC ULCER [None]
  - GASTROINTESTINAL HAEMORRHAGE [None]
  - HIATUS HERNIA [None]
